FAERS Safety Report 23197875 (Version 1)
Quarter: 2023Q4

REPORT INFORMATION
  Report Type: Spontaneous
  Country: US (occurrence: None)
  Receive Date: 20231116
  Receipt Date: 20231116
  Transmission Date: 20240109
  Serious: Yes (Hospitalization)
  Sender: FDA-Public Use
  Company Number: None

PATIENT
  Age: 58 Year
  Sex: Male

DRUGS (2)
  1. PRALUENT [Suspect]
     Active Substance: ALIROCUMAB
     Indication: Cardiac disorder
     Dosage: 7R MG/ML  SUBCUTANEOUS??INJECT 1 ML UNDER THE SKIN (SUBCUTANEOUS INJECTION) EVERY 2 WEEKS IN THE ABD
     Route: 058
     Dates: start: 20191213, end: 20191213
  2. PRALUENT [Suspect]
     Active Substance: ALIROCUMAB
     Dosage: FREQUENCY : AS DIRECTED;?
     Route: 058

REACTIONS (1)
  - Vascular graft [None]

NARRATIVE: CASE EVENT DATE: 20231108
